FAERS Safety Report 9370843 (Version 1)
Quarter: 2013Q2

REPORT INFORMATION
  Report Type: Spontaneous
  Country: AU (occurrence: AU)
  Receive Date: 20130626
  Receipt Date: 20130626
  Transmission Date: 20140414
  Serious: Yes (Hospitalization)
  Sender: FDA-Public Use
  Company Number: AU-ABBOTT-13P-008-1055338-00

PATIENT
  Age: 53 Year
  Sex: Female

DRUGS (3)
  1. VALPROATE SODIUM [Suspect]
     Indication: SCHIZOAFFECTIVE DISORDER
     Dosage: UNKNOWN; UNKNOWN
  2. QUETIAPINE [Suspect]
     Indication: SCHIZOAFFECTIVE DISORDER
  3. THYROXINE [Concomitant]
     Indication: PRODUCT USED FOR UNKNOWN INDICATION

REACTIONS (8)
  - Overdose [Unknown]
  - Hyperammonaemic encephalopathy [Unknown]
  - Ammonia increased [Unknown]
  - Agitation [Unknown]
  - Disorientation [Unknown]
  - Confusional state [Unknown]
  - Hostility [Unknown]
  - Abnormal behaviour [Unknown]
